FAERS Safety Report 4320583-X (Version None)
Quarter: 2004Q1

REPORT INFORMATION
  Report Type: 
  Country: None (occurrence: None)
  Receive Date: 20040310
  Receipt Date: 20040220
  Transmission Date: 20041129
  Serious: No
  Sender: FDA-Public Use
  Company Number: CART-10315

PATIENT
  Age: 41 Year
  Sex: Male

DRUGS (1)
  1. CARTICEL [Suspect]
     Indication: ARTHROPATHY
     Dosage: 1 NA ONCE IS
     Dates: start: 20010320, end: 20010320

REACTIONS (5)
  - ARTHRALGIA [None]
  - CHONDROMALACIA [None]
  - GRAFT COMPLICATION [None]
  - JOINT DISLOCATION [None]
  - SYNOVITIS [None]
